FAERS Safety Report 23601346 (Version 2)
Quarter: 2024Q4

REPORT INFORMATION
  Report Type: Spontaneous
  Country: US (occurrence: US)
  Receive Date: 20240306
  Receipt Date: 20241208
  Transmission Date: 20250115
  Serious: No
  Sender: MERCK KGAA
  Company Number: US-Merck Healthcare KGaA-2024011784

PATIENT
  Age: 79 Year
  Sex: Female

DRUGS (1)
  1. EUTHYROX [Suspect]
     Active Substance: LEVOTHYROXINE SODIUM
     Indication: Post procedural hypothyroidism
     Route: 048
     Dates: start: 202312

REACTIONS (8)
  - Paraesthesia [Unknown]
  - Gait disturbance [Unknown]
  - Osteoporosis [Unknown]
  - Bone demineralisation [Unknown]
  - Blood thyroid stimulating hormone abnormal [Unknown]
  - Speech disorder [Unknown]
  - Arthralgia [Unknown]
  - Adverse drug reaction [Unknown]

NARRATIVE: CASE EVENT DATE: 20231201
